FAERS Safety Report 4520205-9 (Version None)
Quarter: 2004Q4

REPORT INFORMATION
  Report Type: 
  Country: None (occurrence: None)
  Receive Date: 20041025
  Receipt Date: 20040707
  Transmission Date: 20050328
  Serious: Yes (Hospitalization)
  Sender: FDA-Public Use
  Company Number: 2004-BP-05540BP

PATIENT
  Age: 67 Year
  Sex: Male

DRUGS (3)
  1. COMBIVENT [Suspect]
     Indication: EMPHYSEMA
     Dosage: 8 PUF, (SEE TEXT, 18/103MCG/PUFF, 2 PUFFS QID), IH
     Route: 055
     Dates: start: 20030601
  2. ACETYLSALICYLIC ACID SRT [Concomitant]
  3. COD LIVER OIL (COD-LIVER OIL) [Concomitant]

REACTIONS (1)
  - DYSPNOEA [None]
